FAERS Safety Report 15451696 (Version 7)
Quarter: 2019Q2

REPORT INFORMATION
  Report Type: Spontaneous
  Country: US (occurrence: US)
  Receive Date: 20181001
  Receipt Date: 20190606
  Transmission Date: 20190711
  Serious: Yes (Death, Hospitalization, Other)
  Sender: FDA-Public Use
  Company Number: US-GLAXOSMITHKLINE-US2018GSK175670

PATIENT
  Sex: Male
  Weight: 95 kg

DRUGS (5)
  1. PREVACID [Suspect]
     Active Substance: LANSOPRAZOLE
     Indication: ULCER
  2. PREVACID [Suspect]
     Active Substance: LANSOPRAZOLE
     Indication: GASTROOESOPHAGEAL REFLUX DISEASE
     Dosage: 50 MG, BID
     Route: 065
  3. PREVACID [Suspect]
     Active Substance: LANSOPRAZOLE
     Indication: ULCER
     Dosage: 30 MG, QD
     Route: 048
  4. PREVACID [Suspect]
     Active Substance: LANSOPRAZOLE
     Indication: GASTROOESOPHAGEAL REFLUX DISEASE
     Dosage: UNK
     Route: 065
  5. OMEPRAZOLE. [Suspect]
     Active Substance: OMEPRAZOLE
     Indication: PRODUCT USED FOR UNKNOWN INDICATION
     Dosage: 20 MG, QD
     Route: 048

REACTIONS (31)
  - Nephrotic syndrome [Unknown]
  - Anuria [Unknown]
  - Nephrogenic anaemia [Unknown]
  - Nephrectomy [Unknown]
  - Renal mass [Unknown]
  - Chronic kidney disease [Fatal]
  - Renal impairment [Unknown]
  - Urinary incontinence [Unknown]
  - Renal disorder [Unknown]
  - Chronic kidney disease-mineral and bone disorder [Unknown]
  - Haemodialysis [Unknown]
  - Hypertensive nephropathy [Unknown]
  - Diabetes mellitus [Fatal]
  - Dialysis [Unknown]
  - Renal cyst [Unknown]
  - End stage renal disease [Unknown]
  - Acute kidney injury [Unknown]
  - Renal cancer [Unknown]
  - Diabetic nephropathy [Unknown]
  - Cardiovascular disorder [Fatal]
  - Hypertension [Fatal]
  - Cardiac failure congestive [Fatal]
  - Device dependence [Unknown]
  - Single functional kidney [Unknown]
  - Pollakiuria [Unknown]
  - Renal cell carcinoma [Unknown]
  - Urinary tract obstruction [Unknown]
  - Renal failure [Unknown]
  - Oliguria [Unknown]
  - Nephropathy [Unknown]
  - Nocturia [Unknown]
